FAERS Safety Report 25986231 (Version 1)
Quarter: 2025Q4

REPORT INFORMATION
  Report Type: Spontaneous
  Country: US (occurrence: US)
  Receive Date: 20251031
  Receipt Date: 20251031
  Transmission Date: 20260117
  Serious: No
  Sender: ABBVIE
  Company Number: US-ABBVIE-6519609

PATIENT
  Age: 21 Year
  Sex: Female

DRUGS (2)
  1. RINVOQ [Suspect]
     Active Substance: UPADACITINIB
     Indication: Exposure via body fluid
     Route: 050
  2. VITAMINS [Concomitant]
     Active Substance: VITAMINS
     Indication: Vitamin supplementation

REACTIONS (3)
  - Live birth [Unknown]
  - Paternal exposure during pregnancy [Unknown]
  - Maternal exposure during pregnancy [Unknown]
